FAERS Safety Report 4459873-9 (Version None)
Quarter: 2004Q3

REPORT INFORMATION
  Report Type: 
  Country: None (occurrence: None)
  Receive Date: 20040928
  Receipt Date: 20030808
  Transmission Date: 20050211
  Serious: No
  Sender: FDA-Public Use
  Company Number: US-GLAXOSMITHKLINE-A0420184A

PATIENT
  Age: 61 Year
  Sex: Female
  Weight: 52.7 kg

DRUGS (2)
  1. SEREVENT [Suspect]
     Indication: ASTHMA
     Dosage: 1PUFF TWICE PER DAY
     Route: 055
     Dates: start: 20030801, end: 20030803
  2. FLOVENT [Concomitant]
     Route: 055

REACTIONS (3)
  - DYSPNOEA [None]
  - HEADACHE [None]
  - NAUSEA [None]
